FAERS Safety Report 10109960 (Version 2)
Quarter: 2014Q2

REPORT INFORMATION
  Report Type: Spontaneous
  Country: US (occurrence: US)
  Receive Date: 20140425
  Receipt Date: 20140502
  Transmission Date: 20141212
  Serious: Yes (Other)
  Sender: FDA-Public Use
  Company Number: US-RB-065336-14

PATIENT
  Age: 66 Year
  Sex: Female

DRUGS (7)
  1. MUCINEX [Suspect]
     Indication: LUNG DISORDER
     Dosage: TOOK 600 MG FOR DAY TIME DOSE
     Route: 048
     Dates: start: 201309
  2. MUCINEX MAXIMUM STRENGTH [Suspect]
     Indication: LUNG DISORDER
     Dosage: TOOK 1200 MG FOR NIGHT TIME DOSE.
     Route: 048
     Dates: start: 201309
  3. MUCINEX D [Suspect]
     Indication: RESPIRATORY TRACT CONGESTION
     Dosage: OCCASIONALLY TAKE PRODUCT AT NIGHT
     Route: 048
  4. ASTATIN [Concomitant]
     Indication: BLOOD CHOLESTEROL
  5. SPIRIVA [Concomitant]
     Indication: PRODUCT USED FOR UNKNOWN INDICATION
  6. NAPROSYN PRN [Concomitant]
     Indication: PRODUCT USED FOR UNKNOWN INDICATION
  7. ANTIBIOTICS [Concomitant]
     Indication: PNEUMONIA

REACTIONS (3)
  - Nephrolithiasis [Unknown]
  - Blood urine present [Not Recovered/Not Resolved]
  - Incorrect drug administration duration [Not Recovered/Not Resolved]
